FAERS Safety Report 5506629-1 (Version None)
Quarter: 2007Q4

REPORT INFORMATION
  Report Type: 
  Country: None (occurrence: None)
  Receive Date: 20071105
  Receipt Date: 20071023
  Transmission Date: 20080405
  Serious: Yes (Disabling)
  Sender: FDA-Public Use
  Company Number: FR-ROCHE-522994

PATIENT
  Age: 75 Year
  Sex: Male
  Weight: 72 kg

DRUGS (4)
  1. VALIUM [Suspect]
     Indication: ANXIETY
     Dosage: DOSAGE REDUCED
     Route: 065
  2. VALIUM [Suspect]
     Route: 065
  3. LAROXYL [Suspect]
     Indication: SOMNOLENCE
     Dosage: DOSAGE REDUCED
     Route: 048
  4. LAROXYL [Suspect]
     Route: 048

REACTIONS (4)
  - AMYOTROPHY [None]
  - HEART RATE IRREGULAR [None]
  - ORTHOSTATIC HYPOTENSION [None]
  - TENSION [None]
